FAERS Safety Report 6027957-X (Version None)
Quarter: 2009Q1

REPORT INFORMATION
  Report Type: 
  Country: None (occurrence: None)
  Receive Date: 20090105
  Receipt Date: 20090105
  Transmission Date: 20090719
  Serious: Yes (Hospitalization)
  Sender: FDA-Public Use
  Company Number: FR-ABBOTT-08P-056-0494227-00

PATIENT
  Sex: Male

DRUGS (6)
  1. DEPAKINE TABLETS 500 MG [Suspect]
     Indication: EPILEPSY
     Dosage: DAILY
     Route: 048
  2. LEPONEX [Suspect]
     Indication: DRUG USE FOR UNKNOWN INDICATION
     Route: 048
     Dates: start: 20081101, end: 20081126
  3. MIRTAZAPINE [Suspect]
     Indication: MAJOR DEPRESSION
     Route: 048
  4. SEROPRAM [Suspect]
     Indication: MAJOR DEPRESSION
     Route: 048
  5. MACROGOL [Concomitant]
     Indication: DRUG USE FOR UNKNOWN INDICATION
     Route: 054
  6. ENOXAPARIN SODIUM [Concomitant]
     Indication: THROMBOSIS PROPHYLAXIS
     Route: 058

REACTIONS (1)
  - PELVIC VENOUS THROMBOSIS [None]
